FAERS Safety Report 6358620-3 (Version None)
Quarter: 2009Q3

REPORT INFORMATION
  Report Type: 
  Country: None (occurrence: None)
  Receive Date: 20090914
  Receipt Date: 20090909
  Transmission Date: 20100115
  Serious: Yes (Death)
  Sender: FDA-Public Use
  Company Number: 2009SP024280

PATIENT
  Age: 32 Year
  Sex: Female

DRUGS (1)
  1. NOXAFIL [Suspect]
     Indication: BONE MARROW TRANSPLANT

REACTIONS (1)
  - SEPSIS [None]
